FAERS Safety Report 5948351-3 (Version None)
Quarter: 2008Q4

REPORT INFORMATION
  Report Type: 
  Country: None (occurrence: None)
  Receive Date: 20081110
  Receipt Date: 20081110
  Transmission Date: 20090506
  Serious: Yes (Other)
  Sender: FDA-Public Use
  Company Number: None

PATIENT
  Age: 54 Year
  Sex: Female
  Weight: 40.8237 kg

DRUGS (1)
  1. ACTONEL [Suspect]
     Indication: OSTEOPOROSIS
     Dosage: 1 MONTHLY PO
     Route: 048
     Dates: start: 20081101

REACTIONS (8)
  - ABDOMINAL PAIN LOWER [None]
  - ABDOMINAL PAIN UPPER [None]
  - ARTHRALGIA [None]
  - BACK PAIN [None]
  - DIARRHOEA [None]
  - DYSPEPSIA [None]
  - NAUSEA [None]
  - PELVIC PAIN [None]
